FAERS Safety Report 11298398 (Version 1)
Quarter: 2015Q3

REPORT INFORMATION
  Report Type: Spontaneous
  Country: US (occurrence: US)
  Receive Date: 20150722
  Receipt Date: 20150722
  Transmission Date: 20151125
  Serious: No
  Sender: FDA-Public Use
  Company Number: US-ELI_LILLY_AND_COMPANY-US201110001220

PATIENT
  Age: 64 Year
  Sex: Female

DRUGS (3)
  1. POLYETHYLENE GLYCOL [Concomitant]
     Active Substance: POLYETHYLENE GLYCOLS
     Indication: CONSTIPATION
     Dosage: 17 G, QD
  2. PREDNISONE. [Concomitant]
     Active Substance: PREDNISONE
  3. EVISTA [Suspect]
     Active Substance: RALOXIFENE HYDROCHLORIDE
     Indication: OSTEOPOROSIS
     Dosage: 60 MG, QD
     Dates: start: 20110901, end: 20110920

REACTIONS (4)
  - Arthritis [Unknown]
  - Inappropriate schedule of drug administration [Unknown]
  - Hot flush [Unknown]
  - Dizziness [Unknown]

NARRATIVE: CASE EVENT DATE: 20110901
